FAERS Safety Report 8214674-0 (Version None)
Quarter: 2012Q1

REPORT INFORMATION
  Report Type: 
  Country: None (occurrence: None)
  Receive Date: 20120316
  Receipt Date: 20120309
  Transmission Date: 20120608
  Serious: Yes (Other)
  Sender: FDA-Public Use
  Company Number: JP-VERTEX PHARMACEUTICALS INC.-AE-2012-002731

PATIENT
  Age: 65 Year
  Sex: Female

DRUGS (8)
  1. PEGINTERFERON [Concomitant]
     Indication: HEPATITIS C
     Route: 058
     Dates: start: 20120214, end: 20120219
  2. TELAVIC (TELAPREVIR) [Suspect]
     Indication: HEPATITIS C
     Route: 048
     Dates: start: 20120214, end: 20120220
  3. REBETOL [Concomitant]
     Route: 048
     Dates: start: 20120224, end: 20120226
  4. REBETOL [Concomitant]
     Indication: HEPATITIS C
     Route: 048
     Dates: start: 20120214, end: 20120223
  5. REBETOL [Concomitant]
     Route: 048
     Dates: start: 20120306
  6. TELAVIC (TELAPREVIR) [Suspect]
     Route: 048
     Dates: start: 20120221
  7. PEGINTERFERON [Concomitant]
     Dates: start: 20120220
  8. REBETOL [Concomitant]
     Route: 048
     Dates: start: 20120227, end: 20120305

REACTIONS (2)
  - PLATELET COUNT DECREASED [None]
  - MALAISE [None]
